APPROVED DRUG PRODUCT: FENOFIBRIC ACID
Active Ingredient: CHOLINE FENOFIBRATE
Strength: EQ 45MG FENOFIBRIC ACID
Dosage Form/Route: CAPSULE, DELAYED RELEASE;ORAL
Application: A210469 | Product #001
Applicant: TWI PHARMACEUTICALS INC
Approved: Jul 5, 2019 | RLD: No | RS: No | Type: DISCN